FAERS Safety Report 18340369 (Version 1)
Quarter: 2020Q4

REPORT INFORMATION
  Report Type: Spontaneous
  Country: JP (occurrence: JP)
  Receive Date: 20201002
  Receipt Date: 20201002
  Transmission Date: 20210113
  Serious: Yes (Other)
  Sender: FDA-Public Use
  Company Number: JP-PFIZER INC-2020376372

PATIENT
  Age: 55 Year
  Sex: Female
  Weight: 65 kg

DRUGS (9)
  1. LANDSEN [Concomitant]
     Active Substance: CLONAZEPAM
     Dosage: UNK (1)
  2. JZOLOFT [Suspect]
     Active Substance: SERTRALINE HYDROCHLORIDE
     Dosage: UNK
  3. CETAPRIL [Concomitant]
     Active Substance: ALACEPRIL
     Dosage: UNK (25)
  4. PURSENNIDE [Concomitant]
     Dosage: UNK (12)
  5. NITRODERM [Concomitant]
     Active Substance: NITROGLYCERIN
     Dosage: UNK (25)
  6. SERTRALINE [Suspect]
     Active Substance: SERTRALINE HYDROCHLORIDE
     Indication: DEPRESSION
     Dosage: 50 MG, 1X/DAY
     Route: 048
     Dates: end: 20200720
  7. MEILAX [Concomitant]
     Active Substance: ETHYL LOFLAZEPATE
     Dosage: UNK (1)
  8. ARTIST [Concomitant]
     Active Substance: CARVEDILOL
     Dosage: UNK (10)
  9. CONTOMIN [CHLORPROMAZINE HIBENZATE] [Concomitant]
     Active Substance: CHLORPROMAZINE HIBENZATE
     Dosage: UNK (25)

REACTIONS (11)
  - Loss of consciousness [Unknown]
  - Blood chloride decreased [Unknown]
  - Ventricular tachycardia [Unknown]
  - Vomiting [Unknown]
  - Ventricular extrasystoles [Unknown]
  - Hyponatraemia [Unknown]
  - White blood cell count increased [Unknown]
  - Electrocardiogram QT prolonged [Recovering/Resolving]
  - Water intoxication [Unknown]
  - Blood creatine phosphokinase increased [Recovering/Resolving]
  - Blood creatine phosphokinase decreased [Unknown]

NARRATIVE: CASE EVENT DATE: 20200717
